FAERS Safety Report 18067506 (Version 3)
Quarter: 2020Q3

REPORT INFORMATION
  Report Type: Spontaneous
  Country: ID (occurrence: ID)
  Receive Date: 20200724
  Receipt Date: 20200818
  Transmission Date: 20201103
  Serious: Yes (Hospitalization)
  Sender: FDA-Public Use
  Company Number: ID-JNJFOC-20200730071

PATIENT
  Age: 32 Year
  Sex: Female

DRUGS (3)
  1. CETIRIZINE HYDROCHLORIDE. [Suspect]
     Active Substance: CETIRIZINE HYDROCHLORIDE
     Indication: FOOD ALLERGY
     Dosage: 10 MILLIGRAM, ONCE DAILY (QD)
     Route: 048
  2. LORATADINE. [Suspect]
     Active Substance: LORATADINE
     Indication: FOOD ALLERGY
     Dosage: 10 MILLIGRAM, ONCE DAILY (QD)
     Route: 048
  3. METHYLPREDNISOLONE. [Suspect]
     Active Substance: METHYLPREDNISOLONE
     Indication: FOOD ALLERGY
     Dosage: 4 MILLIGRAM, 2X/DAY (BID)
     Route: 048

REACTIONS (9)
  - Dermatitis [Recovering/Resolving]
  - Papule [Recovering/Resolving]
  - Parakeratosis [Recovering/Resolving]
  - Drug eruption [Recovering/Resolving]
  - Condition aggravated [Recovering/Resolving]
  - Eosinophil count increased [Recovering/Resolving]
  - Skin lesion [Recovering/Resolving]
  - Chest discomfort [Recovering/Resolving]
  - Pruritus [Recovering/Resolving]
